FAERS Safety Report 22327531 (Version 2)
Quarter: 2023Q2

REPORT INFORMATION
  Report Type: Spontaneous
  Country: FR (occurrence: FR)
  Receive Date: 20230516
  Receipt Date: 20230530
  Transmission Date: 20230721
  Serious: Yes (Other)
  Sender: FDA-Public Use
  Company Number: FR-SANOFI-01574335

PATIENT
  Age: 42 Year
  Sex: Male

DRUGS (7)
  1. SABRIL [Suspect]
     Active Substance: VIGABATRIN
     Indication: Product used for unknown indication
     Dosage: UNK
     Route: 065
     Dates: start: 2008, end: 2017
  2. SABRIL [Suspect]
     Active Substance: VIGABATRIN
     Dosage: 2500 MG, QD (TID 1000MG IN THE MORNING 1000MG IN THE EVENING WITH AN ADDITIONAL 500MG  TO BE ADMINIS
     Route: 048
     Dates: start: 20190211
  3. VIMPAT [Concomitant]
     Active Substance: LACOSAMIDE
     Indication: Product used for unknown indication
     Dosage: 200 MG MORNING AND EVENING
     Route: 065
  4. LAMICTAL [Concomitant]
     Active Substance: LAMOTRIGINE
     Indication: Product used for unknown indication
     Dosage: 300 MG, BID (100 MG IN THE MORNING AND 200 MG IN THE EVENING,)
     Route: 065
  5. INOVELON [Concomitant]
     Active Substance: RUFINAMIDE
     Indication: Product used for unknown indication
     Dosage: 800 MG MORNING AND EVENING
     Route: 065
  6. LEVOTHYROXINE [Concomitant]
     Active Substance: LEVOTHYROXINE
     Indication: Product used for unknown indication
     Route: 065
  7. KARDEGIC [Concomitant]
     Active Substance: ASPIRIN DL-LYSINE
     Indication: Product used for unknown indication
     Route: 065

REACTIONS (11)
  - Epilepsy [Unknown]
  - Partial seizures [Unknown]
  - Tremor [Unknown]
  - Pain [Unknown]
  - Reflexes abnormal [Unknown]
  - Epilepsy with myoclonic-atonic seizures [Unknown]
  - Paraplegia [Unknown]
  - Excessive eye blinking [Unknown]
  - Hypotonia [Unknown]
  - Myoclonus [Unknown]
  - Inappropriate schedule of product administration [Unknown]

NARRATIVE: CASE EVENT DATE: 20190211
